FAERS Safety Report 13307374 (Version 1)
Quarter: 2017Q1

REPORT INFORMATION
  Report Type: Spontaneous
  Country: US (occurrence: US)
  Receive Date: 20170308
  Receipt Date: 20170308
  Transmission Date: 20170428
  Serious: No
  Sender: FDA-Public Use
  Company Number: US-BAYER-2017-044801

PATIENT
  Age: 38 Year
  Sex: Male

DRUGS (1)
  1. CLARITIN-D 24 HOUR [Suspect]
     Active Substance: LORATADINE\PSEUDOEPHEDRINE SULFATE
     Dosage: 1 TEN MG TABLET A DAY OR EVERY OTHER DAY

REACTIONS (3)
  - Product use issue [None]
  - Nasal congestion [Recovering/Resolving]
  - Unevaluable event [None]
